FAERS Safety Report 9063571 (Version 1)
Quarter: 2013Q1

REPORT INFORMATION
  Report Type: Report from Study
  Country: US (occurrence: US)
  Receive Date: 20130129
  Receipt Date: 20130129
  Transmission Date: 20140127
  Serious: No
  Sender: FDA-Public Use
  Company Number: US-ABBOTT-12P-163-0945103-00

PATIENT
  Age: 59 Year
  Sex: Male

DRUGS (9)
  1. HUMIRA 40 MG/0.8 ML PEN [Suspect]
     Indication: CROHN^S DISEASE
     Dates: start: 201205
  2. PENTASA [Concomitant]
     Indication: CROHN^S DISEASE
     Dosage: 9/DAY
  3. LISINOPRIL [Concomitant]
     Indication: HYPERTENSION
     Dosage: 20/12.5MG-1 DAILY
  4. SERTRALINE [Concomitant]
     Indication: DEPRESSION
  5. METFORMIN [Concomitant]
     Indication: DIABETES MELLITUS
  6. ADVAIR [Concomitant]
     Indication: ASTHMA
     Dosage: 500/50 TWICE A DAY
  7. ZANTAC [Concomitant]
     Indication: DYSPEPSIA
  8. ACETAMINOPHEN [Concomitant]
     Indication: ABDOMINAL PAIN UPPER
     Dosage: OVER-THE-COUNTER
  9. LORTAB [Concomitant]
     Indication: PAIN

REACTIONS (1)
  - Injection site pain [Recovered/Resolved]
